FAERS Safety Report 23905776 (Version 1)
Quarter: 2024Q2

REPORT INFORMATION
  Report Type: Spontaneous
  Country: US (occurrence: US)
  Receive Date: 20240527
  Receipt Date: 20240527
  Transmission Date: 20240716
  Serious: No
  Sender: FDA-Public Use
  Company Number: US-BEH-2024172184

PATIENT
  Age: 52 Year
  Sex: Female

DRUGS (9)
  1. BERINERT [Suspect]
     Active Substance: HUMAN C1-ESTERASE INHIBITOR
     Indication: Hereditary angioedema
     Dosage: 1500 IU, PRN
     Route: 042
     Dates: start: 201611
  2. BERINERT [Suspect]
     Active Substance: HUMAN C1-ESTERASE INHIBITOR
     Indication: Hereditary angioedema
     Dosage: 1500 IU, PRN
     Route: 042
     Dates: start: 201611
  3. BERINERT [Suspect]
     Active Substance: HUMAN C1-ESTERASE INHIBITOR
     Dosage: 1 DF, PRN
     Route: 042
     Dates: start: 20240425
  4. BERINERT [Suspect]
     Active Substance: HUMAN C1-ESTERASE INHIBITOR
     Dosage: 1 DF, PRN
     Route: 042
     Dates: start: 20240425
  5. BERINERT [Suspect]
     Active Substance: HUMAN C1-ESTERASE INHIBITOR
     Dosage: 1 DF, PRN
     Route: 042
     Dates: start: 20240426
  6. BERINERT [Suspect]
     Active Substance: HUMAN C1-ESTERASE INHIBITOR
     Dosage: 1 DF, PRN
     Route: 042
     Dates: start: 20240426
  7. TAKHZYRO [Concomitant]
     Active Substance: LANADELUMAB-FLYO
  8. XOLAIR [Concomitant]
     Active Substance: OMALIZUMAB
     Indication: Asthma
  9. XOLAIR [Concomitant]
     Active Substance: OMALIZUMAB
     Indication: Asthma

REACTIONS (3)
  - Influenza [Unknown]
  - Dehydration [Unknown]
  - Weight increased [Unknown]

NARRATIVE: CASE EVENT DATE: 20240401
